FAERS Safety Report 9247855 (Version 2)
Quarter: 2013Q2

REPORT INFORMATION
  Report Type: Spontaneous
  Country: US (occurrence: US)
  Receive Date: 20130423
  Receipt Date: 20130507
  Transmission Date: 20140414
  Serious: Yes (Hospitalization, Other)
  Sender: FDA-Public Use
  Company Number: US-BRISTOL-MYERS SQUIBB COMPANY-18784496

PATIENT
  Age: 75 Year
  Sex: Female

DRUGS (2)
  1. WARFARIN SODIUM [Suspect]
     Indication: DEEP VEIN THROMBOSIS
     Dosage: CURRENT DOSE:COUMADIN IS 5MG,5D/WK,7.5MG,2D/WK
     Route: 048
  2. WARFARIN SODIUM [Suspect]
     Indication: PULMONARY EMBOLISM
     Dosage: CURRENT DOSE:COUMADIN IS 5MG,5D/WK,7.5MG,2D/WK
     Route: 048

REACTIONS (6)
  - Thrombosis [Unknown]
  - Syncope [Unknown]
  - Dizziness [Unknown]
  - Confusional state [Unknown]
  - Wrong technique in drug usage process [Unknown]
  - International normalised ratio fluctuation [Unknown]
